FAERS Safety Report 8803391 (Version 1)
Quarter: 2012Q4

REPORT INFORMATION
  Report Type: 
  Country: CA (occurrence: CA)
  Receive Date: 20120924
  Receipt Date: 20120924
  Transmission Date: 20130627
  Serious: Yes (Other)
  Sender: FDA-Public Use
  Company Number: PHHY2011CA25981

PATIENT
  Sex: Female

DRUGS (2)
  1. ACLASTA [Suspect]
     Indication: OSTEOPOROSIS
     Dosage: UNK
     Route: 042
     Dates: start: 20110317
  2. ACLASTA [Suspect]
     Route: 042
     Dates: start: 20120306

REACTIONS (3)
  - Intraocular pressure increased [Unknown]
  - Arthralgia [Unknown]
  - Back pain [Unknown]
